FAERS Safety Report 6936421-2 (Version None)
Quarter: 2010Q3

REPORT INFORMATION
  Report Type: 
  Country: None (occurrence: None)
  Receive Date: 20100818
  Receipt Date: 20100804
  Transmission Date: 20110219
  Serious: Yes (Death)
  Sender: FDA-Public Use
  Company Number: A-US2010-37556

PATIENT
  Age: 60 Year
  Sex: Male

DRUGS (1)
  1. TRACLEER [Suspect]
     Indication: PULMONARY ARTERIAL HYPERTENSION
     Dosage: ORAL
     Route: 048
     Dates: end: 20100101

REACTIONS (2)
  - HEPATIC CIRRHOSIS [None]
  - PULMONARY HYPERTENSION [None]
